FAERS Safety Report 8423628-0 (Version None)
Quarter: 2012Q2

REPORT INFORMATION
  Report Type: 
  Country: None (occurrence: None)
  Receive Date: 20120608
  Receipt Date: 20120601
  Transmission Date: 20120825
  Serious: Yes (Death, Hospitalization, Other)
  Sender: FDA-Public Use
  Company Number: JP-PFIZER INC-2012026693

PATIENT
  Age: 71 Year
  Sex: Male

DRUGS (16)
  1. PLAVIX [Suspect]
     Dosage: 75 MG, DAILY
     Route: 048
     Dates: start: 20111214, end: 20120119
  2. ALLORINE [Concomitant]
     Indication: GOUT
     Dosage: 100 MG, 1X/DAY
     Route: 048
     Dates: start: 20110125, end: 20111213
  3. PROMAC /JPN/ [Suspect]
     Dosage: UNK
     Dates: start: 20120118, end: 20120121
  4. METHYLPREDNISOLONE SODIUM SUCCINATE [Concomitant]
     Dosage: UNK
     Dates: start: 20120122, end: 20120127
  5. LIPITOR [Suspect]
     Indication: LOW DENSITY LIPOPROTEIN INCREASED
     Dosage: 10 MG, 1X/DAY
     Route: 048
     Dates: start: 20111213, end: 20120121
  6. CEFAZOLIN [Suspect]
     Indication: PYREXIA
     Dosage: 1 G, 2X/DAY
     Route: 042
     Dates: start: 20111225, end: 20111229
  7. SPIRONOLACTONE [Concomitant]
     Indication: CARDIAC FAILURE
     Dosage: 25 MG, 1X/DAY
     Route: 048
     Dates: start: 20110101, end: 20111213
  8. RADICUT [Concomitant]
     Indication: CEREBRAL INFARCTION
     Dosage: 30 MG, 2X/DAY
     Route: 042
     Dates: start: 20111214, end: 20111226
  9. OZAGREL SODIUM [Concomitant]
     Indication: CEREBRAL INFARCTION
     Dosage: 80 MG, 2X/DAY
     Route: 042
     Dates: start: 20111215, end: 20111227
  10. AMINO ACIDS NOS/CARBOHYDRATES NOS/ELECTROLYTES NOS [Concomitant]
     Dosage: 1 KIT, 1X/DAY
     Dates: start: 20120120, end: 20120127
  11. DORIPENEM MONOHYDRATE [Concomitant]
     Dosage: UNK
     Dates: start: 20120103, end: 20120116
  12. FULCALIQ [Concomitant]
     Dosage: UNK
     Dates: start: 20120120, end: 20120127
  13. CITICOLINE [Concomitant]
     Indication: CEREBRAL INFARCTION
     Dosage: 500 MG, 2X/DAY
     Route: 042
     Dates: start: 20111215, end: 20111228
  14. FUROSEMIDE [Concomitant]
     Indication: CARDIAC FAILURE
     Dosage: 20 MG, 1X/DAY
     Route: 048
     Dates: start: 20110101, end: 20111213
  15. VALPROATE SODIUM [Suspect]
     Indication: CONVULSION
     Dosage: 8 ML, 2X/DAY
     Route: 048
     Dates: start: 20111214, end: 20120121
  16. TELMISARTAN AND HYDROCHLOROTHIAZIDE [Concomitant]
     Indication: HYPERTENSION
     Dosage: ONCE DAILY
     Route: 048
     Dates: start: 20111017, end: 20111213

REACTIONS (7)
  - DERMATITIS BULLOUS [None]
  - CARDIAC FAILURE ACUTE [None]
  - STEVENS-JOHNSON SYNDROME [None]
  - ERYTHEMA MULTIFORME [None]
  - PNEUMONIA [None]
  - ALANINE AMINOTRANSFERASE INCREASED [None]
  - ASPARTATE AMINOTRANSFERASE INCREASED [None]
